FAERS Safety Report 16857951 (Version 2)
Quarter: 2019Q4

REPORT INFORMATION
  Report Type: Spontaneous
  Country: PT (occurrence: PT)
  Receive Date: 20190926
  Receipt Date: 20191002
  Transmission Date: 20200122
  Serious: Yes (Other)
  Sender: FDA-Public Use
  Company Number: PT-ASTRAZENECA-2019SF34425

PATIENT
  Age: 95 Year
  Sex: Female

DRUGS (7)
  1. DIAZEPAM. [Suspect]
     Active Substance: DIAZEPAM
     Indication: INSOMNIA
     Route: 065
     Dates: start: 201802
  2. QUETIAPINE IR [Suspect]
     Active Substance: QUETIAPINE
     Indication: INSOMNIA
     Route: 048
     Dates: start: 20180309
  3. IRON SULPHATE [Concomitant]
     Active Substance: FERROUS SULFATE ANHYDROUS
     Indication: ANAEMIA
     Route: 065
  4. CARBAMAZEPINE. [Concomitant]
     Active Substance: CARBAMAZEPINE
     Indication: TRIGEMINAL NEURALGIA
     Route: 065
  5. RISPERIDONE. [Suspect]
     Active Substance: RISPERIDONE
     Route: 065
  6. FOLATE [Concomitant]
     Active Substance: FOLATE SODIUM
     Indication: ANAEMIA
     Route: 065
  7. ENALAPRIL [Concomitant]
     Active Substance: ENALAPRIL
     Indication: HYPERTENSION
     Route: 065

REACTIONS (3)
  - Off label use [Unknown]
  - Product use in unapproved indication [Unknown]
  - Delirium [Recovered/Resolved]
